FAERS Safety Report 5762898-4 (Version None)
Quarter: 2008Q2

REPORT INFORMATION
  Report Type: 
  Country: None (occurrence: None)
  Receive Date: 20080609
  Receipt Date: 20080401
  Transmission Date: 20081010
  Serious: No
  Sender: FDA-Public Use
  Company Number: US-BAYER-200811396BCC

PATIENT
  Age: 20 Year
  Sex: Female
  Weight: 127 kg

DRUGS (1)
  1. MIDOL EXTENDED RELIEF MAXIMUM STRENGTH [Suspect]
     Indication: DRUG USE FOR UNKNOWN INDICATION
     Dosage: AS USED: 2200 MG  UNIT DOSE: 220 MG
     Route: 048
     Dates: start: 20080401

REACTIONS (1)
  - NO ADVERSE EVENT [None]
